FAERS Safety Report 7817031-1 (Version None)
Quarter: 2011Q4

REPORT INFORMATION
  Report Type: 
  Country: None (occurrence: None)
  Receive Date: 20111014
  Receipt Date: 20111014
  Transmission Date: 20120403
  Serious: Yes (Hospitalization)
  Sender: FDA-Public Use
  Company Number: None

PATIENT
  Age: 48 Year
  Sex: Female
  Weight: 72.5755 kg

DRUGS (1)
  1. ENBREL [Suspect]
     Dosage: 6 DOSES
     Dates: start: 20110501, end: 20110601

REACTIONS (4)
  - INJECTION SITE REACTION [None]
  - PAIN IN EXTREMITY [None]
  - GENE MUTATION [None]
  - DEEP VEIN THROMBOSIS [None]
